FAERS Safety Report 10193208 (Version 1)
Quarter: 2014Q2

REPORT INFORMATION
  Report Type: Spontaneous
  Country: US (occurrence: US)
  Receive Date: 20140524
  Receipt Date: 20140524
  Transmission Date: 20141212
  Serious: No
  Sender: FDA-Public Use
  Company Number: US-SA-2013SA119839

PATIENT
  Age: 30 Year
  Sex: Male
  Weight: 226.79 kg

DRUGS (1)
  1. LANTUS [Suspect]
     Dosage: DOSE:20 UNIT(S)
     Route: 058

REACTIONS (3)
  - Chest pain [Unknown]
  - Adverse event [Unknown]
  - Blood glucose increased [Unknown]
